FAERS Safety Report 8196844-3 (Version None)
Quarter: 2012Q1

REPORT INFORMATION
  Report Type: 
  Country: None (occurrence: None)
  Receive Date: 20120227
  Receipt Date: 20111108
  Transmission Date: 20120608
  Serious: Yes (Other)
  Sender: FDA-Public Use
  Company Number: 335022

PATIENT
  Age: 52 Year
  Sex: Female
  Weight: 80.7 kg

DRUGS (13)
  1. FISH OIL (FISH OIL) [Concomitant]
  2. HYDROCHLOROTHIAZIDE [Concomitant]
  3. CRESTOR [Concomitant]
  4. BUPROPION HCL [Concomitant]
  5. COREG CR (CARVEDILOL) [Concomitant]
  6. NIASPAN ER (NICOTINIC ACID) [Concomitant]
  7. ESTRADIOL [Concomitant]
  8. METFORMIN HCL [Concomitant]
  9. VICTOZA [Suspect]
     Indication: TYPE 2 DIABETES MELLITUS
     Dosage: 1.2 MG, QD, SUBCUTANEOUS
     Route: 058
     Dates: start: 20110601, end: 20110101
  10. AVAPRO [Concomitant]
  11. ASPIRIN [Concomitant]
  12. FUROSEMIDE (FUROSEMIDE) [Concomitant]
  13. JANUMET (METFORMIN HYDROCHLORIDE, SITAGLIPTIN PHOSPHATE MONOHYDRATE) [Concomitant]

REACTIONS (1)
  - RENAL FAILURE ACUTE [None]
